FAERS Safety Report 23278434 (Version 2)
Quarter: 2023Q4

REPORT INFORMATION
  Report Type: Spontaneous
  Country: RS (occurrence: RS)
  Receive Date: 20231208
  Receipt Date: 20231222
  Transmission Date: 20240110
  Serious: Yes (Other)
  Sender: FDA-Public Use
  Company Number: RS-BAUSCH-BL-2023-017764

PATIENT
  Age: 31 Year
  Sex: Female
  Weight: 114 kg

DRUGS (10)
  1. BUPROPION HYDROCHLORIDE\NALTREXONE HYDROCHLORIDE [Suspect]
     Active Substance: BUPROPION HYDROCHLORIDE\NALTREXONE HYDROCHLORIDE
     Indication: Weight control
     Dosage: 90/8MG, 1-0-0, FIRST WEEK (1 DOSAGE FORMS,1 IN 24 HR)
     Route: 065
     Dates: start: 2023, end: 2023
  2. BUPROPION HYDROCHLORIDE\NALTREXONE HYDROCHLORIDE [Suspect]
     Active Substance: BUPROPION HYDROCHLORIDE\NALTREXONE HYDROCHLORIDE
     Dosage: 90/8MG, 1-0-1, SECOND WEEK (1 DOSAGE FORMS,1 IN 12 HR)
     Route: 065
     Dates: start: 2023, end: 2023
  3. BUPROPION HYDROCHLORIDE\NALTREXONE HYDROCHLORIDE [Suspect]
     Active Substance: BUPROPION HYDROCHLORIDE\NALTREXONE HYDROCHLORIDE
     Dosage: 90/8MG, 2-0-1, THIRD WEEK (1 IN 12 HR)
     Route: 065
     Dates: start: 2023, end: 2023
  4. BUPROPION HYDROCHLORIDE\NALTREXONE HYDROCHLORIDE [Suspect]
     Active Substance: BUPROPION HYDROCHLORIDE\NALTREXONE HYDROCHLORIDE
     Dosage: 90/8MG, 2-0-2, FOURTH WEEK (2 DOSAGE FORMS,1 IN 12 HR)
     Route: 065
     Dates: start: 2023
  5. EUTHYROX [Concomitant]
     Active Substance: LEVOTHYROXINE SODIUM
     Indication: Primary hypothyroidism
     Dosage: SINCE SHE WAS 8 YEARS OLD (50 MCG, 1 IN 24 HR)
  6. VITAMIN D [Concomitant]
     Active Substance: VITAMIN D NOS
     Indication: Product used for unknown indication
     Dosage: 4000 IU, 1 IN 24 HR
  7. OMEGA-3 FATTY ACIDS [Concomitant]
     Active Substance: OMEGA-3 FATTY ACIDS
     Indication: Product used for unknown indication
     Dosage: UNK
  8. AMILORIDE HYDROCHLORIDE\METHYCLOTHIAZIDE [Concomitant]
     Active Substance: AMILORIDE HYDROCHLORIDE\METHYCLOTHIAZIDE
     Indication: Product used for unknown indication
     Dosage: EVEN THOUGH HER BLOOD PRESSURE WAS 130/95 - 125/95 MMHG (1 IN 1 WK)
  9. METFORMIN [Concomitant]
     Active Substance: METFORMIN HYDROCHLORIDE
     Indication: Product used for unknown indication
     Dosage: UNK
  10. PANCEF [Concomitant]
     Indication: Respiratory tract infection
     Dosage: UNK

REACTIONS (3)
  - Chronic tonsillitis [Not Recovered/Not Resolved]
  - Disease recurrence [Not Recovered/Not Resolved]
  - Respiratory tract infection [Not Recovered/Not Resolved]

NARRATIVE: CASE EVENT DATE: 20230101
